FAERS Safety Report 7676878-5 (Version None)
Quarter: 2011Q3

REPORT INFORMATION
  Report Type: 
  Country: None (occurrence: None)
  Receive Date: 20110811
  Receipt Date: 20110729
  Transmission Date: 20111222
  Serious: Yes (Other)
  Sender: FDA-Public Use
  Company Number: PHHY2011BR68981

PATIENT
  Age: 66 Year
  Sex: Female

DRUGS (2)
  1. DIOVAN [Suspect]
     Indication: HYPERTENSION
     Dosage: 160 MG
  2. DIOVAN [Suspect]
     Dosage: 80 MG, BID

REACTIONS (3)
  - NEOPLASM MALIGNANT [None]
  - CARDIOMYOPATHY [None]
  - BLOOD PRESSURE DECREASED [None]
